FAERS Safety Report 10907258 (Version 1)
Quarter: 2015Q1

REPORT INFORMATION
  Report Type: Spontaneous
  Country: US (occurrence: None)
  Receive Date: 20150309
  Receipt Date: 20150309
  Transmission Date: 20150721
  Serious: No
  Sender: FDA-Public Use
  Company Number: None

PATIENT
  Age: 12 Year
  Sex: Male

DRUGS (4)
  1. TRILEPTAL [Suspect]
     Active Substance: OXCARBAZEPINE
     Dosage: 1 PILL
     Route: 048
     Dates: start: 20150129, end: 20150213
  2. DDAVP [Concomitant]
     Active Substance: DESMOPRESSIN ACETATE
  3. CLONIDINE. [Concomitant]
     Active Substance: CLONIDINE
  4. CONCERTA [Concomitant]
     Active Substance: METHYLPHENIDATE HYDROCHLORIDE

REACTIONS (4)
  - Eye movement disorder [None]
  - Excessive eye blinking [None]
  - Joint hyperextension [None]
  - Musculoskeletal stiffness [None]

NARRATIVE: CASE EVENT DATE: 20150213
